FAERS Safety Report 4928690-5 (Version None)
Quarter: 2006Q1

REPORT INFORMATION
  Report Type: 
  Country: None (occurrence: None)
  Receive Date: 20060301
  Receipt Date: 20051221
  Transmission Date: 20060701
  Serious: Yes (Hospitalization)
  Sender: FDA-Public Use
  Company Number: GBWYE256221DEC05

PATIENT
  Age: 9 Year
  Sex: Male

DRUGS (6)
  1. ENBREL [Suspect]
     Indication: JUVENILE ARTHRITIS
     Dosage: 11 DOSES
     Route: 058
     Dates: start: 20051018
  2. METHOTREXATE [Concomitant]
     Dates: start: 20050101
  3. UNSPECIFIED ANABOLIC STEROID [Concomitant]
     Dates: start: 20051003, end: 20051003
  4. DICLOFENAC [Concomitant]
  5. SYTRON [Concomitant]
  6. FOLIC ACID [Concomitant]

REACTIONS (4)
  - BODY TEMPERATURE INCREASED [None]
  - INJECTION SITE ERYTHEMA [None]
  - INJECTION SITE URTICARIA [None]
  - URTICARIA GENERALISED [None]
